FAERS Safety Report 6369225-2 (Version None)
Quarter: 2009Q3

REPORT INFORMATION
  Report Type: 
  Country: None (occurrence: None)
  Receive Date: 20090916
  Receipt Date: 20090908
  Transmission Date: 20100115
  Serious: Yes (Death, Hospitalization)
  Sender: FDA-Public Use
  Company Number: ADR20112009

PATIENT
  Age: 48 Year
  Sex: Male

DRUGS (3)
  1. SERTRALINE HCL [Suspect]
     Dosage: ORAL
     Route: 048
  2. QUETIAPINE FUMARATE [Suspect]
  3. ATORVASTATIN [Concomitant]

REACTIONS (5)
  - FALL [None]
  - HEPATIC FAILURE [None]
  - HEPATIC STEATOSIS [None]
  - MENTAL DISORDER [None]
  - SOCIAL AVOIDANT BEHAVIOUR [None]
